FAERS Safety Report 13196417 (Version 3)
Quarter: 2017Q1

REPORT INFORMATION
  Report Type: Spontaneous
  Country: TR (occurrence: TR)
  Receive Date: 20170208
  Receipt Date: 20170215
  Transmission Date: 20170428
  Serious: Yes (Other)
  Sender: FDA-Public Use
  Company Number: TR-ROCHE-1887052

PATIENT
  Age: 33 Year
  Sex: Female

DRUGS (6)
  1. CETRIZINE [Suspect]
     Active Substance: CETIRIZINE HYDROCHLORIDE
     Indication: URTICARIA CHRONIC
     Dosage: 10 MG, QD
     Route: 065
     Dates: start: 20150625
  2. OMALIZUMAB [Suspect]
     Active Substance: OMALIZUMAB
     Indication: URTICARIA CHRONIC
     Route: 065
     Dates: start: 20150817, end: 20151012
  3. DANAZOL. [Suspect]
     Active Substance: DANAZOL
     Indication: URTICARIA CHRONIC
     Dosage: 200 MG, QD
     Route: 065
     Dates: start: 20150408, end: 20150609
  4. DAPSONE. [Suspect]
     Active Substance: DAPSONE
     Indication: URTICARIA CHRONIC
     Dosage: 50 MG, QD
     Route: 065
     Dates: start: 20160118, end: 20160328
  5. HITRIZIN [Suspect]
     Active Substance: CETIRIZINE HYDROCHLORIDE
     Indication: URTICARIA CHRONIC
     Dosage: 10 MG, BID
     Route: 065
     Dates: start: 20151012
  6. EBASTINE [Suspect]
     Active Substance: EBASTINE
     Indication: URTICARIA CHRONIC
     Dosage: 20 MG, QD
     Route: 065
     Dates: start: 20150413, end: 20150508

REACTIONS (2)
  - Abortion spontaneous [Unknown]
  - Maternal exposure during pregnancy [Unknown]

NARRATIVE: CASE EVENT DATE: 20161226
